FAERS Safety Report 6683274-6 (Version None)
Quarter: 2010Q2

REPORT INFORMATION
  Report Type: 
  Country: None (occurrence: None)
  Receive Date: 20100415
  Receipt Date: 20100406
  Transmission Date: 20101027
  Serious: Yes (Other)
  Sender: FDA-Public Use
  Company Number: US-JNJFOC-20100201988

PATIENT
  Sex: Female
  Weight: 62.6 kg

DRUGS (3)
  1. DURAGESIC-100 [Suspect]
     Indication: BACK PAIN
     Route: 062
  2. DURAGESIC-100 [Suspect]
     Route: 062
  3. DESERRIL [Concomitant]
     Indication: SLEEP DISORDER
     Dosage: DOSE: 100 TO 300 MG 1 TO 3 TIMES A DAY AS NEEDED
     Route: 048

REACTIONS (19)
  - ADVERSE EVENT [None]
  - AMNESIA [None]
  - BACK PAIN [None]
  - BENIGN NEOPLASM [None]
  - BLOOD CHOLESTEROL INCREASED [None]
  - BRAIN NEOPLASM [None]
  - BRONCHITIS [None]
  - CONTUSION [None]
  - DEMENTIA [None]
  - DEPRESSION [None]
  - DETOXIFICATION [None]
  - FALL [None]
  - FORMICATION [None]
  - NEOPLASM MALIGNANT [None]
  - NERVOUS SYSTEM DISORDER [None]
  - PAIN [None]
  - PERIPHERAL SENSORY NEUROPATHY [None]
  - PNEUMONIA [None]
  - SENSORY LOSS [None]
